FAERS Safety Report 5670352-3 (Version None)
Quarter: 2008Q1

REPORT INFORMATION
  Report Type: 
  Country: None (occurrence: None)
  Receive Date: 20080314
  Receipt Date: 20080314
  Transmission Date: 20080703
  Serious: No
  Sender: FDA-Public Use
  Company Number: None

PATIENT
  Sex: Female

DRUGS (1)
  1. INJ IVOMEC UNK [Suspect]
     Indication: DRUG ADMINISTRATION ERROR
     Dosage: 2.5 ML/INJ
     Dates: start: 20080302

REACTIONS (6)
  - ACCIDENTAL NEEDLE STICK [None]
  - HAEMORRHAGE [None]
  - LIMB INJURY [None]
  - PAIN [None]
  - SCRATCH [None]
  - SKIN IRRITATION [None]
